FAERS Safety Report 5183322-9 (Version None)
Quarter: 2006Q4

REPORT INFORMATION
  Report Type: 
  Country: None (occurrence: None)
  Receive Date: 20061220
  Receipt Date: 20060109
  Transmission Date: 20070319
  Serious: No
  Sender: FDA-Public Use
  Company Number: US-GLAXOSMITHKLINE-A0588250A

PATIENT
  Age: 36 Year
  Sex: Male

DRUGS (2)
  1. EQUATE NTS 14MG [Suspect]
     Indication: SMOKING CESSATION THERAPY
     Dates: start: 20060107, end: 20060109
  2. EQUATE NTS 21MG [Suspect]
     Indication: SMOKING CESSATION THERAPY
     Dates: start: 20060107, end: 20060109

REACTIONS (3)
  - DIZZINESS [None]
  - MALAISE [None]
  - PAIN IN EXTREMITY [None]
